FAERS Safety Report 7293744-8 (Version None)
Quarter: 2011Q1

REPORT INFORMATION
  Report Type: 
  Country: None (occurrence: None)
  Receive Date: 20110204
  Receipt Date: 20110119
  Transmission Date: 20110831
  Serious: Yes (Other)
  Sender: FDA-Public Use
  Company Number: AUR-APL-2011-00279

PATIENT
  Age: 60 Year

DRUGS (7)
  1. MIRTAZAPINE [Suspect]
     Indication: DEPRESSION
  2. CETIRIZINE HCL [Suspect]
     Dosage: 10MG - DAILY
  3. METFORMIN [Suspect]
     Dosage: 1500MG - DAILY
  4. COLCHICINE [Suspect]
     Dosage: 1MG - DAILY
  5. DOXAZOSIN [Suspect]
     Dosage: 4MG - DAILY
  6. VALSARTAN [Suspect]
     Dosage: 120MG - DAILY
  7. ALLOPURINOL [Suspect]
     Dosage: 300MG - DAILY

REACTIONS (1)
  - PANCREATITIS ACUTE [None]
